FAERS Safety Report 8166676-0 (Version None)
Quarter: 2012Q1

REPORT INFORMATION
  Report Type: 
  Country: None (occurrence: None)
  Receive Date: 20120227
  Receipt Date: 20120213
  Transmission Date: 20120608
  Serious: Yes (Death)
  Sender: FDA-Public Use
  Company Number: CH-MYLANLABS-2012S1003552

PATIENT
  Age: 37 Year
  Sex: Male

DRUGS (4)
  1. HYDROCODONE [Concomitant]
     Route: 065
  2. NALBUPHINE [Concomitant]
     Route: 065
  3. PHENYLTOLOXAMINE [Concomitant]
     Route: 065
  4. HALOPERIDOL [Suspect]
     Dosage: 1MG DAILY
     Route: 030

REACTIONS (1)
  - CARDIAC ARREST [None]
